FAERS Safety Report 7902653-X (Version None)
Quarter: 2011Q4

REPORT INFORMATION
  Report Type: 
  Country: None (occurrence: None)
  Receive Date: 20111108
  Receipt Date: 20110810
  Transmission Date: 20120403
  Serious: Yes (Life-Threatening)
  Sender: FDA-Public Use
  Company Number: PHFR2011GB006395

PATIENT
  Age: 46 Year
  Sex: Male

DRUGS (2)
  1. DICLOFENAC SODIUM [Suspect]
     Indication: GOUT
     Dosage: 50 MG, DAILY
     Route: 048
     Dates: start: 20110725, end: 20110725
  2. ALLOPURINOL [Concomitant]
     Indication: GOUT
     Dosage: 100 MG, UNK
     Route: 048
     Dates: start: 20080618

REACTIONS (3)
  - CHOKING [None]
  - LIP SWELLING [None]
  - RASH GENERALISED [None]
